FAERS Safety Report 21647372 (Version 1)
Quarter: 2022Q4

REPORT INFORMATION
  Report Type: Spontaneous
  Country: CN (occurrence: CN)
  Receive Date: 20221128
  Receipt Date: 20221128
  Transmission Date: 20230112
  Serious: Yes (Other)
  Sender: FDA-Public Use
  Company Number: None

PATIENT
  Age: 58 Year
  Sex: Male
  Weight: 60 kg

DRUGS (9)
  1. CYCLOPHOSPHAMIDE [Suspect]
     Active Substance: CYCLOPHOSPHAMIDE
     Indication: Chemotherapy
     Dosage: 0.8 G, QD, DOSAGE FORM: INJECTION (DILUTED WITH SODIUM CHLORIDE (NORMAL SALINE) 500 ML)
     Route: 041
     Dates: start: 20221030, end: 20221030
  2. CYCLOPHOSPHAMIDE [Suspect]
     Active Substance: CYCLOPHOSPHAMIDE
     Indication: Lymphoma
  3. SODIUM CHLORIDE [Suspect]
     Active Substance: SODIUM CHLORIDE
     Indication: Medication dilution
     Dosage: 500 ML, QD (USED TO DILUTE CYCLOPHOSPHAMIDE 0.8 G)
     Route: 041
     Dates: start: 20221030, end: 20221030
  4. SODIUM CHLORIDE [Suspect]
     Active Substance: SODIUM CHLORIDE
     Dosage: 100 ML, QD (USED TO DILUTE DOXORUBICIN 80 MG)
     Route: 041
     Dates: start: 20221030, end: 20221030
  5. SODIUM CHLORIDE [Suspect]
     Active Substance: SODIUM CHLORIDE
     Dosage: 100 ML, QD (USED TO DILUTE VINCRISTINE SULFATE 1 MG)
     Route: 041
     Dates: start: 20221030, end: 20221030
  6. DOXORUBICIN [Suspect]
     Active Substance: DOXORUBICIN
     Indication: Chemotherapy
     Dosage: 80 MG, QD (DILUTED WITH SODIUM CHLORIDE 100 ML)
     Route: 041
     Dates: start: 20221030, end: 20221030
  7. DOXORUBICIN [Suspect]
     Active Substance: DOXORUBICIN
     Indication: Lymphoma
  8. VINCRISTINE SULFATE [Suspect]
     Active Substance: VINCRISTINE SULFATE
     Indication: Chemotherapy
     Dosage: 1 MG, QD (DILUTED WITH SODIUM CHLORIDE 100 ML)
     Route: 041
     Dates: start: 20221030, end: 20221030
  9. VINCRISTINE SULFATE [Suspect]
     Active Substance: VINCRISTINE SULFATE
     Indication: Lymphoma

REACTIONS (1)
  - Myelosuppression [Unknown]

NARRATIVE: CASE EVENT DATE: 20221105
